FAERS Safety Report 8472466-1 (Version None)
Quarter: 2012Q2

REPORT INFORMATION
  Report Type: 
  Country: None (occurrence: None)
  Receive Date: 20120627
  Receipt Date: 20111006
  Transmission Date: 20120825
  Serious: No
  Sender: FDA-Public Use
  Company Number: US-AMGEN-USASP2011052545

PATIENT
  Age: 54 Year
  Sex: Male

DRUGS (4)
  1. INTERFERON [Concomitant]
     Indication: HEPATITIS C
     Dosage: UNK
  2. PROCRIT [Suspect]
     Indication: ANAEMIA
     Dosage: 40000 IU, QWK
     Dates: start: 20110930
  3. BOCEPREVIR [Concomitant]
     Indication: HEPATITIS C
     Dosage: UNK
  4. RIBAVIRIN [Concomitant]
     Indication: HEPATITIS C
     Dosage: UNK

REACTIONS (1)
  - MEDICATION ERROR [None]
